FAERS Safety Report 8178491-2 (Version None)
Quarter: 2012Q1

REPORT INFORMATION
  Report Type: 
  Country: None (occurrence: None)
  Receive Date: 20120301
  Receipt Date: 20120220
  Transmission Date: 20120608
  Serious: Yes (Other)
  Sender: FDA-Public Use
  Company Number: DE-FRI-1000025007

PATIENT
  Sex: Male
  Weight: 50 kg

DRUGS (8)
  1. ROFLUMILAST [Suspect]
     Indication: CHRONIC OBSTRUCTIVE PULMONARY DISEASE
     Route: 048
     Dates: start: 20110826, end: 20110826
  2. BETA BLOCKER [Concomitant]
  3. ASPIRIN [Concomitant]
  4. ACE INHIBITOR [Concomitant]
  5. VERAPAMIL [Concomitant]
     Dosage: 160 MG
  6. RAMIPRIL [Concomitant]
  7. FLUTICASONE PROPIONATE/SALMETEROL [Concomitant]
     Indication: CHRONIC OBSTRUCTIVE PULMONARY DISEASE
     Dosage: 1 DOSAGE FORM (1 PUFF, 50/ 250)
  8. SPIRIVA [Concomitant]
     Indication: CHRONIC OBSTRUCTIVE PULMONARY DISEASE
     Dosage: 1 DOSAGE FORM (1 PUFF)

REACTIONS (4)
  - SUICIDE ATTEMPT [None]
  - ABDOMINAL PAIN [None]
  - TACHYCARDIA [None]
  - INTENTIONAL OVERDOSE [None]
